FAERS Safety Report 9644656 (Version 1)
Quarter: 2013Q4

REPORT INFORMATION
  Report Type: Spontaneous
  Country: US (occurrence: US)
  Receive Date: 20131025
  Receipt Date: 20131025
  Transmission Date: 20140711
  Serious: Yes (Other)
  Sender: FDA-Public Use
  Company Number: US-JNJFOC-20131009095

PATIENT
  Sex: 0

DRUGS (1)
  1. HALOPERIDOL [Suspect]
     Indication: SCHIZOPHRENIA
     Route: 065

REACTIONS (13)
  - Electrocardiogram QT prolonged [Unknown]
  - Sinus tachycardia [Unknown]
  - Sinus bradycardia [Unknown]
  - Electrocardiogram ST segment depression [Unknown]
  - Electrocardiogram Q wave abnormal [Unknown]
  - Electrocardiogram QRS complex abnormal [Unknown]
  - Extrasystoles [Unknown]
  - Ventricular extrasystoles [Unknown]
  - Conduction disorder [Unknown]
  - Electrocardiogram PQ interval prolonged [Unknown]
  - Electrocardiogram QRS complex prolonged [Unknown]
  - Electrocardiogram ST-T change [Unknown]
  - Electrocardiogram T wave abnormal [Unknown]
